FAERS Safety Report 4704252-X (Version None)
Quarter: 2005Q2

REPORT INFORMATION
  Report Type: 
  Country: None (occurrence: None)
  Receive Date: 20050628
  Receipt Date: 20050613
  Transmission Date: 20051028
  Serious: Yes (Other)
  Sender: FDA-Public Use
  Company Number: 214641

PATIENT
  Age: 16 Year
  Sex: Male
  Weight: 100.5 kg

DRUGS (6)
  1. MABTHERA(RITUXIMAB) CONC FOR SOLUTION FOR INFUSION [Suspect]
     Indication: B-CELL LYMPHOMA
     Dosage: SEE IMAGE
     Route: 042
     Dates: start: 20041115, end: 20050117
  2. MABTHERA(RITUXIMAB) CONC FOR SOLUTION FOR INFUSION [Suspect]
     Indication: B-CELL LYMPHOMA
     Dosage: SEE IMAGE
     Route: 042
     Dates: start: 20050323, end: 20050511
  3. TYLENOL [Concomitant]
  4. BENADRYL [Concomitant]
  5. HYDROCORTISONE SODIUM SUCCINATE (HYDROCHLROCORTISONE SODIUM SUCCINATE) [Concomitant]
  6. SEPTRA [Concomitant]

REACTIONS (3)
  - BLINDNESS UNILATERAL [None]
  - TINNITUS [None]
  - URTICARIA [None]
